FAERS Safety Report 5854564-1 (Version None)
Quarter: 2008Q3

REPORT INFORMATION
  Report Type: 
  Country: None (occurrence: None)
  Receive Date: 20080822
  Receipt Date: 20070925
  Transmission Date: 20090109
  Serious: No
  Sender: FDA-Public Use
  Company Number: US-ABBOTT-07P-163-0418245-00

PATIENT
  Sex: Female
  Weight: 64.468 kg

DRUGS (2)
  1. SYNTHROID [Suspect]
     Indication: HYPOTHYROIDISM
     Dates: start: 20060301, end: 20061101
  2. SYNTHROID [Suspect]
     Dates: start: 20070201, end: 20070501

REACTIONS (2)
  - ABNORMAL SENSATION IN EYE [None]
  - PHOTOPHOBIA [None]
